FAERS Safety Report 4473012-X (Version None)
Quarter: 2004Q4

REPORT INFORMATION
  Report Type: 
  Country: None (occurrence: None)
  Receive Date: 20041013
  Receipt Date: 20041005
  Transmission Date: 20050328
  Serious: Yes (Life-Threatening, Disabling, Other)
  Sender: FDA-Public Use
  Company Number: GB-BRISTOL-MYERS SQUIBB COMPANY-12721445

PATIENT
  Age: 58 Year
  Sex: Female

DRUGS (4)
  1. TRAZODONE HCL [Suspect]
     Indication: DEPRESSION
     Route: 048
     Dates: start: 20031224, end: 20031224
  2. DOTHIEPIN HYDROCHLORIDE [Interacting]
     Indication: DEPRESSION
     Dosage: DOSAGE: 150MG TO 50MG.
     Route: 048
     Dates: start: 20000120, end: 20031224
  3. DOTHIEPIN HYDROCHLORIDE [Interacting]
     Indication: CHRONIC FATIGUE SYNDROME
     Dosage: DOSAGE: 150MG TO 50MG.
     Route: 048
     Dates: start: 20000120, end: 20031224
  4. CO-DYDRAMOL [Interacting]
     Indication: BACK PAIN
     Route: 048
     Dates: start: 19981201

REACTIONS (14)
  - ASTHENIA [None]
  - CIRCULATORY COLLAPSE [None]
  - CONFUSIONAL STATE [None]
  - CONTUSION [None]
  - DIZZINESS [None]
  - DRUG INTERACTION [None]
  - FEELING ABNORMAL [None]
  - HEADACHE [None]
  - INSOMNIA [None]
  - LOSS OF CONSCIOUSNESS [None]
  - NASOPHARYNGITIS [None]
  - PALPITATIONS [None]
  - SYNCOPE [None]
  - TACHYCARDIA [None]
